FAERS Safety Report 4944302-9 (Version None)
Quarter: 2006Q1

REPORT INFORMATION
  Report Type: 
  Country: None (occurrence: None)
  Receive Date: 20060309
  Receipt Date: 20060228
  Transmission Date: 20060701
  Serious: Yes (Hospitalization)
  Sender: FDA-Public Use
  Company Number: 222640

PATIENT
  Age: 8 Year
  Sex: Female

DRUGS (3)
  1. NUTROPIN [Suspect]
     Indication: BODY HEIGHT BELOW NORMAL
     Dosage: 1.2 MG, SUBCUTANEOUS
     Route: 058
     Dates: start: 20050503
  2. CELLCEPT [Concomitant]
  3. PREDNISONE TAB [Concomitant]

REACTIONS (2)
  - CONVULSION [None]
  - MENINGITIS VIRAL [None]
